FAERS Safety Report 7149279-6 (Version None)
Quarter: 2010Q4

REPORT INFORMATION
  Report Type: 
  Country: None (occurrence: None)
  Receive Date: 20101209
  Receipt Date: 20101203
  Transmission Date: 20110411
  Serious: Yes (Other)
  Sender: FDA-Public Use
  Company Number: US-CEPHALON-2010006125

PATIENT
  Sex: Male
  Weight: 73 kg

DRUGS (2)
  1. NUVIGIL [Suspect]
     Indication: SOMNOLENCE
     Route: 048
     Dates: start: 20101114
  2. NUVIGIL [Suspect]
     Indication: SLEEP APNOEA SYNDROME

REACTIONS (2)
  - MUSCLE TIGHTNESS [None]
  - PARAESTHESIA [None]
